FAERS Safety Report 5742215-6 (Version None)
Quarter: 2008Q2

REPORT INFORMATION
  Report Type: 
  Country: None (occurrence: None)
  Receive Date: 20080515
  Receipt Date: 20080506
  Transmission Date: 20081010
  Serious: Yes (Other)
  Sender: FDA-Public Use
  Company Number: 163-20785-08031368

PATIENT
  Age: 60 Year
  Sex: Female
  Weight: 66.2 kg

DRUGS (6)
  1. THALOMID [Suspect]
     Indication: MULTIPLE MYELOMA
     Dosage: 50 MG, QD, ORAL, 100 MG, QD, ORAL
     Route: 048
     Dates: start: 20060209
  2. THALOMID [Suspect]
     Indication: MULTIPLE MYELOMA
     Dosage: 50 MG, QD, ORAL, 100 MG, QD, ORAL
     Route: 048
     Dates: start: 20061215
  3. VITAMIN B COMPLEX (B-KOMPLEX ^LECIVA^) [Concomitant]
  4. DIOVAN [Concomitant]
  5. MULTIPLE VITAMINS  (MULTIPLE VITAMINS) [Concomitant]
  6. FOSAMAX [Concomitant]

REACTIONS (4)
  - ALVEOLITIS ALLERGIC [None]
  - FUNGAL INFECTION [None]
  - FUSARIUM INFECTION [None]
  - LUNG INFECTION [None]
